FAERS Safety Report 14525284 (Version 1)
Quarter: 2018Q1

REPORT INFORMATION
  Report Type: Spontaneous
  Country: US (occurrence: US)
  Receive Date: 20180210
  Receipt Date: 20180210
  Transmission Date: 20180509
  Serious: No
  Sender: FDA-Public Use
  Company Number: None

PATIENT
  Age: 37 Year
  Sex: Female
  Weight: 90 kg

DRUGS (6)
  1. TIZANIDINE. [Concomitant]
     Active Substance: TIZANIDINE
  2. LISINOPRIL-HCTZ [Suspect]
     Active Substance: HYDROCHLOROTHIAZIDE\LISINOPRIL
     Indication: HYPERTENSION
     Dosage: ?          QUANTITY:30 TABLET(S);?
     Route: 048
  3. CLONIDINE. [Concomitant]
     Active Substance: CLONIDINE
  4. EXCEDRIN [Concomitant]
     Active Substance: ACETAMINOPHEN\ASPIRIN\CAFFEINE
  5. VITAMIN E [Concomitant]
     Active Substance: .ALPHA.-TOCOPHEROL
  6. TUMS [Concomitant]
     Active Substance: CALCIUM CARBONATE

REACTIONS (2)
  - Mass [None]
  - Musculoskeletal pain [None]

NARRATIVE: CASE EVENT DATE: 20180122
